FAERS Safety Report 7449943-5 (Version None)
Quarter: 2011Q2

REPORT INFORMATION
  Report Type: 
  Country: None (occurrence: None)
  Receive Date: 20110421
  Receipt Date: 20110406
  Transmission Date: 20111010
  Serious: Yes (Other)
  Sender: FDA-Public Use
  Company Number: AUR-APL-2011-01011

PATIENT
  Sex: Female
  Weight: 60 kg

DRUGS (8)
  1. SUMATRIPTAN [Concomitant]
  2. ACETAMINOPHEN AND CODEINE PHOSPHATE [Concomitant]
  3. AMITRIPTYLINE HCL [Concomitant]
  4. GABAPENTIN [Suspect]
     Indication: FACIAL PAIN
     Dosage: 300MG-TID-ORAL
     Route: 048
     Dates: start: 20110107, end: 20110201
  5. GABAPENTIN [Suspect]
     Indication: HEADACHE
     Dosage: 300MG-TID-ORAL
     Route: 048
     Dates: start: 20110107, end: 20110201
  6. PHOSPHATE ION [Concomitant]
  7. LORATADINE [Concomitant]
  8. DICLOFENAC SODIUM (SOLARAZE) [Concomitant]

REACTIONS (2)
  - SLEEP TALKING [None]
  - SOMNAMBULISM [None]
